FAERS Safety Report 7596076-3 (Version None)
Quarter: 2011Q3

REPORT INFORMATION
  Report Type: 
  Country: None (occurrence: None)
  Receive Date: 20110707
  Receipt Date: 20110704
  Transmission Date: 20111222
  Serious: Yes (Death, Other)
  Sender: FDA-Public Use
  Company Number: PHHY2011CR59146

PATIENT
  Sex: Female

DRUGS (3)
  1. ZOLEDRONOC ACID [Suspect]
     Indication: OSTEOPOROSIS
     Dosage: 5 MG ANNUALLY
     Route: 042
     Dates: start: 20080101
  2. ZOLEDRONOC ACID [Suspect]
     Dosage: 5 MG ANNUALLY
     Route: 042
     Dates: start: 20090101
  3. ANTIHYPERTENSIVE DRUGS [Concomitant]

REACTIONS (8)
  - METASTASES TO BONE [None]
  - DEPRESSION [None]
  - ANAEMIA [None]
  - METASTASES TO LUNG [None]
  - DECREASED APPETITE [None]
  - METASTASES TO KIDNEY [None]
  - METASTASES TO LIVER [None]
  - TERMINAL STATE [None]
